APPROVED DRUG PRODUCT: DEFERASIROX
Active Ingredient: DEFERASIROX
Strength: 180MG
Dosage Form/Route: GRANULE;ORAL
Application: A214180 | Product #002
Applicant: TEVA PHARMACEUTICALS USA INC
Approved: Nov 19, 2021 | RLD: No | RS: No | Type: DISCN